FAERS Safety Report 18675419 (Version 1)
Quarter: 2020Q4

REPORT INFORMATION
  Report Type: Report from Study
  Country: None (occurrence: US)
  Receive Date: 20201229
  Receipt Date: 20201229
  Transmission Date: 20210114
  Serious: Yes (Hospitalization)
  Sender: FDA-Public Use
  Company Number: US-ABBVIE-20K-163-3706971-00

PATIENT
  Sex: Male

DRUGS (3)
  1. HUMIRA [Suspect]
     Active Substance: ADALIMUMAB
     Dosage: DAY 29
     Route: 058
     Dates: start: 20201118
  2. HUMIRA [Suspect]
     Active Substance: ADALIMUMAB
     Indication: COLITIS ULCERATIVE
     Dosage: DAY 1
     Route: 058
     Dates: start: 20201021, end: 20201021
  3. HUMIRA [Suspect]
     Active Substance: ADALIMUMAB
     Dosage: DAY 2
     Route: 058
     Dates: start: 20201022, end: 20201022

REACTIONS (8)
  - Nausea [Recovered/Resolved]
  - Diarrhoea [Recovering/Resolving]
  - Abdominal pain [Recovered/Resolved]
  - Rectal haemorrhage [Recovering/Resolving]
  - Pyrexia [Recovered/Resolved]
  - Faeces soft [Recovering/Resolving]
  - Vomiting [Recovered/Resolved]
  - Weight decreased [Unknown]

NARRATIVE: CASE EVENT DATE: 2020
